FAERS Safety Report 10236708 (Version 1)
Quarter: 2014Q2

REPORT INFORMATION
  Report Type: Spontaneous
  Country: CA (occurrence: CA)
  Receive Date: 20140613
  Receipt Date: 20140613
  Transmission Date: 20141212
  Serious: Yes (Other)
  Sender: FDA-Public Use
  Company Number: CA-GLAXOSMITHKLINE-A1075592A

PATIENT
  Age: 71 Year
  Sex: Female
  Weight: 72 kg

DRUGS (6)
  1. BREO ELLIPTA [Suspect]
     Indication: CHRONIC OBSTRUCTIVE PULMONARY DISEASE
     Route: 055
     Dates: start: 20140531, end: 20140531
  2. ADVAIR [Suspect]
     Indication: PRODUCT USED FOR UNKNOWN INDICATION
     Route: 065
  3. TELMISARTAN [Concomitant]
  4. LEVOTHYROXINE [Concomitant]
  5. SPIRIVA [Concomitant]
  6. SALBUTAMOL [Concomitant]
     Dosage: 100MCG TWICE PER DAY

REACTIONS (3)
  - Vision blurred [Not Recovered/Not Resolved]
  - Eye pain [Unknown]
  - Foreign body sensation in eyes [Unknown]
